FAERS Safety Report 21298999 (Version 1)
Quarter: 2022Q3

REPORT INFORMATION
  Report Type: Spontaneous
  Country: US (occurrence: None)
  Receive Date: 20220905
  Receipt Date: 20220905
  Transmission Date: 20221026
  Serious: Yes (Other)
  Sender: FDA-Public Use
  Company Number: None

PATIENT
  Age: 61 Year
  Sex: Female
  Weight: 67.05 kg

DRUGS (8)
  1. INDOMETHACIN [Suspect]
     Active Substance: INDOMETHACIN
     Indication: Temporomandibular joint syndrome
     Dosage: FREQUENCY : EVERY 12 HOURS;?
     Route: 048
     Dates: start: 20220831, end: 20220901
  2. DEXEDRINE [Concomitant]
     Active Substance: DEXTROAMPHETAMINE SULFATE
  3. LEVOTHYROXINE [Concomitant]
     Active Substance: LEVOTHYROXINE
  4. LIOTHYRONINE [Concomitant]
     Active Substance: LIOTHYRONINE
  5. LOSARTAN [Concomitant]
     Active Substance: LOSARTAN
  6. EFFEXOR XR [Concomitant]
     Active Substance: VENLAFAXINE HYDROCHLORIDE
  7. TRAZODONE [Concomitant]
     Active Substance: TRAZODONE HYDROCHLORIDE
  8. VITAMINS [Concomitant]
     Active Substance: VITAMINS

REACTIONS (6)
  - Arthralgia [None]
  - Generalised oedema [None]
  - Mobility decreased [None]
  - Weight bearing difficulty [None]
  - Polydipsia [None]
  - Urine output decreased [None]

NARRATIVE: CASE EVENT DATE: 20220901
